FAERS Safety Report 9527132 (Version 1)
Quarter: 2013Q3

REPORT INFORMATION
  Report Type: Spontaneous
  Country: US (occurrence: US)
  Receive Date: 20130916
  Receipt Date: 20130916
  Transmission Date: 20140515
  Serious: Yes (Other)
  Sender: FDA-Public Use
  Company Number: US-RB-058312-13

PATIENT
  Sex: Female

DRUGS (3)
  1. SUBOXONE FILM [Suspect]
     Indication: DRUG DEPENDENCE
     Dosage: SUBOXONE FILM
     Route: 060
     Dates: start: 201010, end: 201302
  2. CYMBALTA [Suspect]
     Indication: DEPRESSION
     Route: 048
     Dates: end: 2013
  3. ALBUTEROL INHALER [Suspect]
     Indication: ASTHMA
     Dosage: THE PATIENT WAS TAKING THE MEDICATION AS NEEDED, 1-2 PUFFS
     Route: 055

REACTIONS (3)
  - Maternal exposure during pregnancy [Recovered/Resolved]
  - Road traffic accident [Recovered/Resolved]
  - Abortion spontaneous [Recovered/Resolved]
